FAERS Safety Report 10724507 (Version 2)
Quarter: 2015Q3

REPORT INFORMATION
  Report Type: Spontaneous
  Country: US (occurrence: US)
  Receive Date: 20150115
  Receipt Date: 20150823
  Transmission Date: 20151125
  Serious: Yes (Other)
  Sender: FDA-Public Use
  Company Number: 2015-0025-SPO

PATIENT
  Age: 57 Year
  Sex: Female
  Weight: 92.27 kg

DRUGS (2)
  1. HUMIRA [Concomitant]
     Active Substance: ADALIMUMAB
     Route: 058
     Dates: start: 201303, end: 20141031
  2. ESTROGEL [Suspect]
     Active Substance: ESTRADIOL
     Indication: BLOOD OESTROGEN DECREASED
     Route: 062
     Dates: start: 20140827, end: 20141114

REACTIONS (6)
  - Dyspnoea [None]
  - Pain in extremity [None]
  - Peripheral swelling [None]
  - Skin discolouration [None]
  - Deep vein thrombosis [None]
  - Pulmonary embolism [None]

NARRATIVE: CASE EVENT DATE: 201409
